FAERS Safety Report 14080245 (Version 1)
Quarter: 2017Q4

REPORT INFORMATION
  Report Type: Spontaneous
  Country: US (occurrence: US)
  Receive Date: 20171012
  Receipt Date: 20171012
  Transmission Date: 20180321
  Serious: No
  Sender: FDA-Public Use
  Company Number: US-MYLANLABS-2017M1033585

PATIENT
  Sex: Female
  Weight: 59 kg

DRUGS (2)
  1. LORAZEPAM TABLETS USP [Suspect]
     Active Substance: LORAZEPAM
     Indication: ANXIETY
  2. LORAZEPAM TABLETS USP [Suspect]
     Active Substance: LORAZEPAM
     Indication: POST-TRAUMATIC STRESS DISORDER
     Dosage: 1 MG, BID
     Route: 048
     Dates: start: 201608, end: 201705

REACTIONS (1)
  - Glomerular filtration rate decreased [Unknown]
